FAERS Safety Report 4987110-5 (Version None)
Quarter: 2006Q2

REPORT INFORMATION
  Report Type: 
  Country: None (occurrence: None)
  Receive Date: 20060501
  Receipt Date: 20060420
  Transmission Date: 20061013
  Serious: Yes (Other)
  Sender: FDA-Public Use
  Company Number: US-JNJFOC-20060405464

PATIENT
  Sex: Female
  Weight: 90.72 kg

DRUGS (4)
  1. FENTANYL TRANSDERMAL SYSTEM [Suspect]
     Route: 062
  2. NEURONTIN [Concomitant]
     Indication: PAIN
     Route: 048
  3. ZOLOFT [Concomitant]
     Indication: DEPRESSION
     Route: 048
  4. CELEBREX [Concomitant]
     Indication: PAIN
     Route: 048

REACTIONS (4)
  - APPLICATION SITE DERMATITIS [None]
  - FALL [None]
  - HEADACHE [None]
  - HYPERTENSION [None]
